FAERS Safety Report 5450970-8 (Version None)
Quarter: 2007Q3

REPORT INFORMATION
  Report Type: 
  Country: None (occurrence: None)
  Receive Date: 20070911
  Receipt Date: 20070911
  Transmission Date: 20080115
  Serious: Yes (Other)
  Sender: FDA-Public Use
  Company Number: None

PATIENT
  Age: 51 Year
  Sex: Male
  Weight: 104.3273 kg

DRUGS (1)
  1. FENTANYL [Suspect]
     Indication: PAIN
     Dosage: 75MCG/HR Q3 DAYS TRANSDERMAL
     Route: 062
     Dates: start: 20070901, end: 20070910

REACTIONS (1)
  - MEDICATION ERROR [None]
